FAERS Safety Report 9014284 (Version 6)
Quarter: 2014Q3

REPORT INFORMATION
  Report Type: Spontaneous
  Country: US (occurrence: US)
  Receive Date: 20130115
  Receipt Date: 20140701
  Transmission Date: 20150326
  Serious: Yes (Hospitalization, Other)
  Sender: FDA-Public Use
  Company Number: US-009507513-1301USA005274

PATIENT
  Sex: Female
  Weight: 81.63 kg

DRUGS (2)
  1. NUVARING [Suspect]
     Active Substance: ETHINYL ESTRADIOL\ETONOGESTREL
     Dosage: UNK
     Route: 067
     Dates: start: 200606, end: 200609
  2. NUVARING [Suspect]
     Active Substance: ETHINYL ESTRADIOL\ETONOGESTREL
     Indication: CONTRACEPTION
     Dosage: UNK
     Route: 067
     Dates: start: 20070512, end: 20111221

REACTIONS (12)
  - Cervical dysplasia [Unknown]
  - Constipation [Unknown]
  - Female sterilisation [Unknown]
  - Pulmonary embolism [Unknown]
  - Urine analysis abnormal [Unknown]
  - Inappropriate schedule of drug administration [Unknown]
  - Papilloma viral infection [Unknown]
  - Bacterial vaginosis [Unknown]
  - Maternal exposure before pregnancy [Unknown]
  - Device issue [Unknown]
  - Drug abuse [Unknown]
  - Cervical dysplasia [Unknown]

NARRATIVE: CASE EVENT DATE: 20070212
